FAERS Safety Report 9795383 (Version 1)
Quarter: 2014Q1

REPORT INFORMATION
  Report Type: Spontaneous
  Country: US (occurrence: US)
  Receive Date: 20140103
  Receipt Date: 20140103
  Transmission Date: 20141002
  Serious: No
  Sender: FDA-Public Use
  Company Number: US-BAYER-2014-000997

PATIENT
  Age: 42 Year
  Sex: Female

DRUGS (2)
  1. ESSURE [Suspect]
     Dosage: UNK
     Dates: start: 20120515
  2. MIRENA [Suspect]
     Indication: MENSTRUAL CYCLE MANAGEMENT
     Dosage: 20 MCG/24HR, CONT
     Route: 015
     Dates: start: 20121011

REACTIONS (2)
  - Orgasm abnormal [Unknown]
  - Pelvic pain [Unknown]
